FAERS Safety Report 4674361-2 (Version None)
Quarter: 2005Q2

REPORT INFORMATION
  Report Type: 
  Country: None (occurrence: None)
  Receive Date: 20050526
  Receipt Date: 20050516
  Transmission Date: 20051028
  Serious: Yes (Life-Threatening, Hospitalization)
  Sender: FDA-Public Use
  Company Number: GBWYE667116MAY05

PATIENT
  Sex: Female
  Weight: 80 kg

DRUGS (9)
  1. ENBREL [Suspect]
     Indication: RHEUMATOID ARTHRITIS
     Route: 058
     Dates: start: 20040517, end: 20050404
  2. METHOTREXATE SODIUM [Concomitant]
  3. FOLIC ACID [Concomitant]
  4. PIROXICAM [Concomitant]
  5. AMLODIPINE [Concomitant]
  6. NEXIUM [Concomitant]
  7. BENDROFLUMETHIAZIDE [Concomitant]
  8. DOTHIEPIN HYDROCHLORIDE [Concomitant]
  9. CODEINE PHOSPHATE/PARACETAMOL [Concomitant]

REACTIONS (4)
  - GASTROINTESTINAL INFECTION [None]
  - RENAL FAILURE [None]
  - SEPSIS [None]
  - URINARY TRACT INFECTION [None]
